FAERS Safety Report 5807390-3 (Version None)
Quarter: 2008Q3

REPORT INFORMATION
  Report Type: 
  Country: None (occurrence: None)
  Receive Date: 20080711
  Receipt Date: 20080708
  Transmission Date: 20090109
  Serious: Yes (Death)
  Sender: FDA-Public Use
  Company Number: GB-TEVA-173955ISR

PATIENT
  Age: 57 Year
  Sex: Male

DRUGS (2)
  1. PREDNISOLONE [Suspect]
     Indication: PSORIASIS
     Route: 058
  2. ETANERCEPT [Suspect]
     Indication: ARTHROPATHY
     Dates: start: 20070112

REACTIONS (2)
  - PNEUMONIA [None]
  - SEPSIS [None]
